FAERS Safety Report 8515286-1 (Version None)
Quarter: 2012Q3

REPORT INFORMATION
  Report Type: 
  Country: None (occurrence: None)
  Receive Date: 20120705
  Receipt Date: 20120618
  Transmission Date: 20120928
  Serious: Yes (Hospitalization, Other)
  Sender: FDA-Public Use
  Company Number: CIP11000526

PATIENT
  Age: 63 Year
  Sex: Female
  Weight: 56.2 kg

DRUGS (22)
  1. SENNA S (DOCUSATE SODIUM, SENNOSIDE A+B) [Concomitant]
  2. FLAXSEED OIL (LINUM USITATISSIMUM SEED OIL) [Concomitant]
  3. TYLENOL (CAPLET) [Concomitant]
  4. GLUCOSAMINE (GLUCOSAMINE) [Concomitant]
  5. GARLIC /01570501/ (ALLIUM SATIVUM) [Concomitant]
  6. HYZAAR /01625701/ (HYDROCHLOROTHIAZIDE, LOSARTAN) [Concomitant]
  7. ESTRACE [Concomitant]
  8. TESTOSTERONE [Concomitant]
  9. VITAMIN B COMPLEX /00056201/ (CYANOCOBALAMIN) [Concomitant]
  10. SENNA /00571901/ (SENNOSIDE A+B) [Concomitant]
  11. TUMS /00193601/ (CALCIUM CARBONATE, MAGNESIUM CARBONATE, MAGNESIUM TRI [Concomitant]
  12. ACTONEL [Suspect]
     Indication: STRESS FRACTURE
     Dosage: 150 MG ONCE MONTHLY, ORAL
     Route: 048
     Dates: start: 20081030, end: 20100928
  13. MULTIPLE VITAMINS (ASCORBIC ACID, ERGOCALCIFEROL, FOLIC ACID, RETINOL, [Concomitant]
  14. ZYELT (LOTEPREDNOL ETABONATE, TOBRAMYCIN) [Concomitant]
  15. HYDROCODONE W/APAP (HYDROCODONE, PARACETAMOL) [Concomitant]
  16. ACETAMINOPHEN W/ CODEINE [Concomitant]
  17. CALAN /00014302/ (VERAPAMIL HYDROCHLORIDE) [Concomitant]
  18. HALFLYTELY (MACROGOL, POTASSIUM CHLORIDE, SODIUM BICARBONATE) [Concomitant]
  19. CIPRO [Concomitant]
  20. EFFEXOR /01233801/ (VENLFAXINE) [Concomitant]
  21. FISH OIL (FISH OIL) [Concomitant]
  22. CHOLECALCIFEROL (COLECALCIFEROL) [Concomitant]

REACTIONS (11)
  - HAEMATOCRIT DECREASED [None]
  - STRESS FRACTURE [None]
  - FRACTURE DELAYED UNION [None]
  - HAEMOGLOBIN DECREASED [None]
  - FALL [None]
  - MUSCLE SPASMS [None]
  - POST PROCEDURAL COMPLICATION [None]
  - MUSCLE STRAIN [None]
  - FOOT FRACTURE [None]
  - ARTHRALGIA [None]
  - ATYPICAL FEMUR FRACTURE [None]
